FAERS Safety Report 4876644-X (Version None)
Quarter: 2006Q1

REPORT INFORMATION
  Report Type: 
  Country: None (occurrence: None)
  Receive Date: 20060110
  Receipt Date: 20050113
  Transmission Date: 20060701
  Serious: Yes (Death, Hospitalization)
  Sender: FDA-Public Use
  Company Number: US-MERCK-0501USA02276

PATIENT
  Age: 76 Year
  Sex: Male
  Weight: 127 kg

DRUGS (1)
  1. VIOXX [Suspect]
     Indication: ARTHRITIS
     Route: 048
     Dates: start: 20000101, end: 20020101

REACTIONS (7)
  - AORTIC ANEURYSM [None]
  - ARTHROPATHY [None]
  - BACK PAIN [None]
  - CARDIAC DISORDER [None]
  - DEATH [None]
  - HERNIA [None]
  - HYPERSENSITIVITY [None]
